FAERS Safety Report 9187625 (Version 7)
Quarter: 2014Q3

REPORT INFORMATION
  Report Type: Spontaneous
  Country: US (occurrence: US)
  Receive Date: 20130325
  Receipt Date: 20140801
  Transmission Date: 20150326
  Serious: Yes (Hospitalization, Other)
  Sender: FDA-Public Use
  Company Number: US-009507513-1303USA010491

PATIENT
  Sex: Female
  Weight: 57.59 kg

DRUGS (8)
  1. FOSAMAX [Suspect]
     Active Substance: ALENDRONATE SODIUM
     Dosage: 70 MG, QW
     Route: 048
     Dates: start: 200109, end: 200812
  2. ALENDRONATE SODIUM. [Suspect]
     Active Substance: ALENDRONATE SODIUM
     Indication: OSTEOPOROSIS
     Dosage: 70 MG, UNK
     Dates: start: 200901, end: 200906
  3. CALCIUM (UNSPECIFIED) [Concomitant]
     Active Substance: CALCIUM
     Dosage: UNK, ONE A DAY
     Dates: start: 1990
  4. VITAMIN D [Concomitant]
     Active Substance: CHOLECALCIFEROL
     Dosage: UNK, ONE A DAY
     Dates: start: 1990
  5. FOSAMAX [Suspect]
     Active Substance: ALENDRONATE SODIUM
     Indication: OSTEOPOROSIS
     Dosage: 10 MG, QD
     Route: 048
     Dates: start: 199809, end: 200109
  6. ALENDRONATE SODIUM. [Suspect]
     Active Substance: ALENDRONATE SODIUM
     Dosage: 70 MG, UNK
     Dates: start: 201001, end: 201007
  7. FOSAMAX [Suspect]
     Active Substance: ALENDRONATE SODIUM
     Dosage: 70 MG, QW
     Route: 048
     Dates: start: 200907, end: 200912
  8. FOSAMAX [Suspect]
     Active Substance: ALENDRONATE SODIUM
     Dosage: 70 MG, QW
     Route: 048
     Dates: start: 201012

REACTIONS (36)
  - Femur fracture [Unknown]
  - Cataract operation [Unknown]
  - Hiatus hernia [Unknown]
  - Chondrocalcinosis [Unknown]
  - Osteoarthritis [Unknown]
  - Hypercalcaemia [Recovering/Resolving]
  - Chondrocalcinosis [Unknown]
  - Lung infiltration [Unknown]
  - Low turnover osteopathy [Unknown]
  - Blood creatinine increased [Recovering/Resolving]
  - Blood urea increased [Recovering/Resolving]
  - Intramedullary rod insertion [Unknown]
  - Loss of consciousness [Unknown]
  - Metastases to lung [Unknown]
  - Thyroid neoplasm [Unknown]
  - Vascular calcification [Unknown]
  - Aortic calcification [Unknown]
  - Pleural effusion [Unknown]
  - Adverse drug reaction [Unknown]
  - Gait disturbance [Unknown]
  - Dehydration [Recovering/Resolving]
  - Intervertebral disc space narrowing [Unknown]
  - Pain in extremity [Unknown]
  - Hypertension [Unknown]
  - Meniscus injury [Unknown]
  - Bundle branch block left [Unknown]
  - Asthenia [Unknown]
  - Hypercholesterolaemia [Unknown]
  - Electrocardiogram abnormal [Unknown]
  - Ligament sprain [Unknown]
  - Clavicle fracture [Unknown]
  - Balance disorder [Unknown]
  - Renal cancer metastatic [Unknown]
  - Atrophic vulvovaginitis [Unknown]
  - Blood alkaline phosphatase increased [Recovering/Resolving]
  - Spondylolisthesis [Unknown]

NARRATIVE: CASE EVENT DATE: 19980914
